FAERS Safety Report 8514930 (Version 7)
Quarter: 2012Q4

REPORT INFORMATION
  Report Type: 
  Country: US (occurrence: US)
  Receive Date: 20120416
  Receipt Date: 20121024
  Transmission Date: 20130627
  Serious: Yes (Other)
  Sender: FDA-Public Use
  Company Number: US-PFIZER INC-2012085613

PATIENT
  Age: 64 Year
  Sex: Female
  Weight: 79.82 kg

DRUGS (6)
  1. DESVENLAFAXINE SUCCINATE MONOHYDRATE [Suspect]
     Indication: MAJOR DEPRESSION
     Dosage: 50 mg, 1x/day
     Route: 048
     Dates: start: 20120209, end: 20120215
  2. DESVENLAFAXINE SUCCINATE MONOHYDRATE [Suspect]
     Dosage: 100 mg, 1x/day
     Route: 048
     Dates: start: 20120216, end: 20120403
  3. DESVENLAFAXINE SUCCINATE MONOHYDRATE [Suspect]
     Dosage: 50 mg, 1x/day
     Route: 048
     Dates: start: 20120404, end: 20120405
  4. VICODIN [Concomitant]
     Indication: BURSITIS
     Dosage: 500/5 mg, 0-2 x/week as needed
     Route: 048
     Dates: start: 201111, end: 201203
  5. ADVIL [Concomitant]
     Indication: BURSITIS
     Dosage: 200-400 mg, as needed
     Route: 048
     Dates: start: 201102
  6. ATIVAN [Concomitant]
     Indication: ANXIETY
     Dosage: 1 mg, single
     Route: 048
     Dates: start: 20120331, end: 20120331

REACTIONS (1)
  - Atrial fibrillation [Recovered/Resolved with Sequelae]
